FAERS Safety Report 5768888-X (Version None)
Quarter: 2008Q2

REPORT INFORMATION
  Report Type: 
  Country: None (occurrence: None)
  Receive Date: 20080610
  Receipt Date: 20080530
  Transmission Date: 20081010
  Serious: Yes (Death)
  Sender: FDA-Public Use
  Company Number: GXKR2008JP04941

PATIENT
  Age: 73 Year
  Sex: Male

DRUGS (5)
  1. CARBOPLATIN [Suspect]
     Indication: LUNG ADENOCARCINOMA
     Dosage: 500 MG WITHIN 60 MIN, INFUSION
     Dates: start: 20080508, end: 20080508
  2. TAXOL [Suspect]
     Indication: LUNG ADENOCARCINOMA
     Dosage: 100 MG WITHN 45, INFUSION
     Dates: start: 20080508, end: 20080508
  3. DECADRON PHOSPATE (DEXAMETHASONE SODIUM PHOSPHATE) [Concomitant]
  4. FAMOTIDINE [Concomitant]
  5. SEROTONE (AZASETRON HYDROCHLORIDE) [Concomitant]

REACTIONS (1)
  - SHOCK [None]
